FAERS Safety Report 11240283 (Version 1)
Quarter: 2015Q3

REPORT INFORMATION
  Report Type: Spontaneous
  Country: DK (occurrence: DK)
  Receive Date: 20150706
  Receipt Date: 20150706
  Transmission Date: 20151125
  Serious: Yes (Life-Threatening, Hospitalization, Other)
  Sender: FDA-Public Use
  Company Number: DK-PFIZER INC-2015219917

PATIENT
  Age: 26 Year
  Sex: Male

DRUGS (4)
  1. IPRAMOL STERI-NEB [Concomitant]
     Indication: ASTHMA
     Dosage: INHALATION 3 TIMES
     Route: 055
     Dates: start: 20150103, end: 20150103
  2. ADRENALIN [Concomitant]
     Active Substance: EPINEPHRINE
     Indication: ASTHMA
     Dosage: 0.3 MG, UNK
     Route: 042
     Dates: start: 20150103, end: 20150103
  3. SOLU-MEDROL [Suspect]
     Active Substance: METHYLPREDNISOLONE SODIUM SUCCINATE
     Indication: ASTHMA
     Dosage: 80 MG, UNK
     Route: 042
     Dates: start: 20150103, end: 20150103
  4. SALBUTAMOL SULFATE [Concomitant]
     Active Substance: ALBUTEROL SULFATE
     Indication: ASTHMA
     Dosage: INHALATION 5 TIMES DAILY
     Route: 055

REACTIONS (6)
  - Generalised erythema [Unknown]
  - Cardiac massage [Recovered/Resolved]
  - Circulatory collapse [Recovered/Resolved]
  - Endotracheal intubation [Recovered/Resolved]
  - Anaphylactic shock [Recovered/Resolved]
  - Cardiac arrest [Recovered/Resolved]

NARRATIVE: CASE EVENT DATE: 20150103
